FAERS Safety Report 7920664 (Version 3)
Quarter: 2013Q3

REPORT INFORMATION
  Report Type: Spontaneous
  Country: US (occurrence: US)
  Receive Date: 20110429
  Receipt Date: 20130729
  Transmission Date: 20140515
  Serious: Yes (Other)
  Sender: FDA-Public Use
  Company Number: US-ROCHE-743305

PATIENT
  Age: 22 Year
  Sex: Male
  Weight: 83.9 kg

DRUGS (1)
  1. ACCUTANE [Suspect]
     Indication: ACNE
     Route: 048
     Dates: start: 19990201, end: 2000

REACTIONS (5)
  - Crohn^s disease [Unknown]
  - Gastrointestinal injury [Unknown]
  - Inflammatory bowel disease [Unknown]
  - Perirectal abscess [Unknown]
  - Anal fistula [Unknown]
